FAERS Safety Report 9628364 (Version 1)
Quarter: 2013Q4

REPORT INFORMATION
  Report Type: Spontaneous
  Country: CA (occurrence: CA)
  Receive Date: 20131017
  Receipt Date: 20131017
  Transmission Date: 20140711
  Serious: Yes (Other)
  Sender: FDA-Public Use
  Company Number: CA-BAYER-2013-122379

PATIENT
  Sex: Female

DRUGS (1)
  1. YASMIN 28 [Suspect]
     Dosage: UNK
     Route: 048

REACTIONS (3)
  - Urinary tract infection [None]
  - Metrorrhagia [None]
  - Abnormal withdrawal bleeding [None]
